FAERS Safety Report 9964160 (Version 1)
Quarter: 2014Q1

REPORT INFORMATION
  Report Type: Spontaneous
  Country: US (occurrence: US)
  Receive Date: 20140305
  Receipt Date: 20140305
  Transmission Date: 20141002
  Serious: Yes (Other)
  Sender: FDA-Public Use
  Company Number: US-BAYER-2014-032657

PATIENT
  Age: 37 Year
  Sex: Female

DRUGS (1)
  1. MIRENA [Suspect]
     Indication: POLYP
     Dosage: 20 MCG/24HR, CONT
     Route: 015
     Dates: start: 20130925, end: 20131101

REACTIONS (10)
  - Device dislocation [None]
  - Genital haemorrhage [None]
  - Off label use [None]
  - Hypoaesthesia [Recovering/Resolving]
  - Pain [Recovering/Resolving]
  - Abdominal pain [Recovering/Resolving]
  - Headache [Recovered/Resolved]
  - Initial insomnia [Recovering/Resolving]
  - Feeling abnormal [Recovering/Resolving]
  - Blood pressure increased [Recovering/Resolving]
